FAERS Safety Report 8921175 (Version 1)
Quarter: 2012Q4

REPORT INFORMATION
  Report Type: 
  Country: AT (occurrence: AT)
  Receive Date: 20121122
  Receipt Date: 20121122
  Transmission Date: 20130627
  Serious: Yes (Hospitalization, Other)
  Sender: FDA-Public Use
  Company Number: AT-PAR PHARMACEUTICAL, INC-2012SCPR004718

PATIENT

DRUGS (21)
  1. CLONAZEPAM [Suspect]
     Indication: DEPRESSION
     Dosage: UNK, Unknown
     Route: 065
  2. CLONAZEPAM [Suspect]
     Indication: RAPID EYE MOVEMENTS SLEEP ABNORMAL
  3. LEVODOPA [Suspect]
     Indication: PARKINSONISM
     Dosage: 550 mg, / day
     Route: 065
  4. LEVODOPA [Suspect]
     Dosage: 850 mg, / day
     Route: 065
  5. LEVODOPA [Suspect]
     Dosage: 750 mg, / day
     Route: 065
  6. APOMORPHINE [Suspect]
     Indication: PARKINSONISM
     Dosage: 90 mg, / day
     Route: 058
     Dates: start: 200710, end: 200805
  7. APOMORPHINE [Suspect]
     Dosage: 93 mg, / day
     Route: 058
  8. APOMORPHINE [Suspect]
     Dosage: 92 mg/day
     Route: 058
  9. AMANTADINE [Suspect]
     Indication: PARKINSONISM
     Dosage: 300 mg, Unknown
     Route: 065
     Dates: start: 200710, end: 200812
  10. AMANTADINE [Suspect]
     Dosage: 350 mg, Unknown
     Route: 065
     Dates: start: 200801
  11. AMANTADINE [Suspect]
     Dosage: 100 UNK, UNK
     Route: 065
     Dates: start: 200811, end: 200912
  12. AMANTADINE [Suspect]
     Dosage: 200 UNK, UNK
     Route: 065
     Dates: start: 200901
  13. SERTRALINE [Suspect]
     Indication: DEPRESSION
     Dosage: UNK, Unknown
     Route: 065
  14. SERTRALINE [Suspect]
     Indication: RAPID EYE MOVEMENTS SLEEP ABNORMAL
  15. MIRTAZAPINE [Suspect]
     Indication: DEPRESSION
     Dosage: UNK, Unknown
     Route: 065
  16. MIRTAZAPINE [Suspect]
     Indication: RAPID EYE MOVEMENTS SLEEP ABNORMAL
  17. QUETIAPINE [Suspect]
     Indication: DEPRESSION
     Dosage: 100 mg, / day
     Route: 065
     Dates: start: 200804
  18. QUETIAPINE [Suspect]
     Indication: HALLUCINATION, VISUAL
  19. QUETIAPINE [Suspect]
     Indication: PARANOIA
  20. CLOZAPINE [Suspect]
     Indication: DEPRESSION
     Dosage: 37.5 mg, / day
     Route: 065
     Dates: end: 200805
  21. CLOZAPINE [Suspect]
     Indication: PARANOIA

REACTIONS (6)
  - Impulse-control disorder [Recovered/Resolved]
  - Intentional self-injury [Unknown]
  - Sedation [Unknown]
  - Psychotic disorder [Recovered/Resolved]
  - Suicide attempt [Unknown]
  - Depression [Recovering/Resolving]
